FAERS Safety Report 5475938-7 (Version None)
Quarter: 2007Q4

REPORT INFORMATION
  Report Type: 
  Country: None (occurrence: None)
  Receive Date: 20071003
  Receipt Date: 20070924
  Transmission Date: 20080405
  Serious: Yes (Death)
  Sender: FDA-Public Use
  Company Number: AT-ELI_LILLY_AND_COMPANY-AT200709005967

PATIENT
  Age: 74 Year
  Sex: Male
  Weight: 92 kg

DRUGS (1)
  1. GEMZAR [Suspect]
     Indication: TRANSITIONAL CELL CARCINOMA
     Dosage: 2423 MG, UNK
     Route: 042
     Dates: start: 20070815

REACTIONS (1)
  - MULTI-ORGAN FAILURE [None]
